FAERS Safety Report 15430072 (Version 1)
Quarter: 2018Q4

REPORT INFORMATION
  Report Type: Spontaneous
  Country: US (occurrence: US)
  Receive Date: 20180926
  Receipt Date: 20180926
  Transmission Date: 20190204
  Serious: No
  Sender: FDA-Public Use
  Company Number: US-ASSERTIO THERAPEUTICS, INC.-US-2017DEP002254

PATIENT

DRUGS (1)
  1. GRALISE [Suspect]
     Active Substance: GABAPENTIN
     Indication: PRODUCT USED FOR UNKNOWN INDICATION
     Dosage: 1500 MG, QD (TAKING A SAMPLE PACK WITH AN ESCALATING DOSE)

REACTIONS (4)
  - Dyskinesia [Recovering/Resolving]
  - Photopsia [Recovered/Resolved]
  - Drug dose titration not performed [Not Recovered/Not Resolved]
  - Tremor [Recovering/Resolving]
